FAERS Safety Report 7392535-7 (Version None)
Quarter: 2011Q2

REPORT INFORMATION
  Report Type: 
  Country: None (occurrence: None)
  Receive Date: 20110404
  Receipt Date: 20110104
  Transmission Date: 20111010
  Serious: No
  Sender: FDA-Public Use
  Company Number: US-BAYER-2011-027936

PATIENT
  Sex: Male
  Weight: 63 kg

DRUGS (4)
  1. IBUPROFEN [Concomitant]
     Indication: PROCEDURAL PAIN
  2. PERCOCET [Concomitant]
  3. UNCODEABLE ^UNCLASSIFIABLE^ [Concomitant]
     Indication: PROCEDURAL PAIN
  4. ALEVE (CAPLET) [Suspect]
     Dosage: CONSUMER CHEWED 1 CAPLET. BOTTLE COUNT 24S
     Route: 048
     Dates: start: 20101101

REACTIONS (2)
  - DIZZINESS [None]
  - ABDOMINAL DISCOMFORT [None]
